FAERS Safety Report 6897121-0 (Version None)
Quarter: 2010Q3

REPORT INFORMATION
  Report Type: 
  Country: None (occurrence: None)
  Receive Date: 20100802
  Receipt Date: 20070403
  Transmission Date: 20110219
  Serious: Yes (Other)
  Sender: FDA-Public Use
  Company Number: US-PFIZER INC-2007026783

PATIENT
  Sex: Female
  Weight: 81.6 kg

DRUGS (7)
  1. LYRICA [Suspect]
     Indication: NEURALGIA
     Dates: start: 20061201, end: 20070319
  2. CYMBALTA [Suspect]
     Indication: DEPRESSION
  3. GLUCOPHAGE [Concomitant]
  4. PLAVIX [Concomitant]
  5. ALTACE [Concomitant]
  6. METOPROLOL [Concomitant]
  7. ANALGESICS [Concomitant]

REACTIONS (6)
  - DECREASED APPETITE [None]
  - DRY MOUTH [None]
  - HALLUCINATION [None]
  - INSOMNIA [None]
  - NAUSEA [None]
  - OEDEMA PERIPHERAL [None]
